FAERS Safety Report 8000388-9 (Version None)
Quarter: 2011Q4

REPORT INFORMATION
  Report Type: 
  Country: None (occurrence: None)
  Receive Date: 20111222
  Receipt Date: 20111208
  Transmission Date: 20120403
  Serious: Yes (Hospitalization, Other)
  Sender: FDA-Public Use
  Company Number: US-RANBAXY-2011RR-51180

PATIENT
  Sex: Female

DRUGS (19)
  1. CLIMARA [Concomitant]
     Indication: HOT FLUSH
     Dosage: UNK
     Route: 065
     Dates: start: 20040701
  2. CIPROFLOXACIN [Suspect]
     Dosage: 500 MG, UNK
     Route: 048
     Dates: start: 20040811
  3. LEVAQUIN [Suspect]
     Dosage: 500 MG, UNK
     Route: 048
     Dates: start: 20090803
  4. METHYLPREDNISOLONE [Suspect]
     Dosage: 2 MG, UNK
     Dates: start: 20050928
  5. CIPROFLOXACIN [Suspect]
     Indication: INFECTION
     Dosage: 500 MG, UNK
     Route: 065
     Dates: start: 20040803
  6. CIPROFLOXACIN [Suspect]
     Dosage: 500 MG, UNK
     Route: 048
     Dates: start: 20070112
  7. TRIAMTERENE [Concomitant]
     Indication: DIURETIC THERAPY
     Dosage: UNK
     Route: 065
     Dates: start: 20071201
  8. CIPROFLOXACIN [Suspect]
     Dosage: 250 MG, UNK
     Dates: start: 20101012
  9. LEVAQUIN [Suspect]
     Dosage: 500 MG, UNK
     Route: 048
     Dates: start: 20050723
  10. LEVAQUIN [Suspect]
     Dosage: 500 MG, UNK
     Route: 048
     Dates: start: 20090713
  11. LEVAQUIN [Suspect]
     Dosage: 500 MG, UNK
     Route: 048
     Dates: start: 20050721
  12. METHYLPREDNISOLONE [Suspect]
     Dosage: 16 MG, UNK
     Route: 065
  13. LEVAQUIN [Suspect]
     Dosage: 750 MG, UNK
     Route: 048
     Dates: start: 20050626
  14. LEVAQUIN [Suspect]
     Indication: CELLULITIS
     Dosage: UNK
     Route: 048
  15. PREDNISOLONE [Suspect]
     Indication: PRODUCT USED FOR UNKNOWN INDICATION
     Dosage: 60 MG, UNK
  16. LEVAQUIN [Suspect]
     Indication: LOCALISED INFECTION
     Dosage: 500 MG, UNK
     Route: 048
     Dates: start: 20040801
  17. METHYLPREDNISOLONE [Suspect]
     Indication: INFLAMMATION
     Dosage: 4 MG, UNK
     Route: 048
     Dates: start: 20050927
  18. FOLIC ACID [Concomitant]
     Indication: SYSTEMIC LUPUS ERYTHEMATOSUS
     Dosage: UNK
     Route: 065
     Dates: start: 20000101
  19. NIFEDIPINE [Concomitant]
     Indication: HYPERTENSION
     Dosage: UNK
     Route: 065
     Dates: start: 20060801

REACTIONS (8)
  - TENDON RUPTURE [None]
  - PLANTAR FASCIITIS [None]
  - JOINT DISLOCATION [None]
  - INFECTION [None]
  - LIGAMENT INJURY [None]
  - INFECTIVE TENOSYNOVITIS [None]
  - ROTATOR CUFF SYNDROME [None]
  - TENDONITIS [None]
